FAERS Safety Report 26073988 (Version 1)
Quarter: 2025Q4

REPORT INFORMATION
  Report Type: Spontaneous
  Country: EU (occurrence: EU)
  Receive Date: 20251121
  Receipt Date: 20251121
  Transmission Date: 20260117
  Serious: Yes (Other)
  Sender: AUROBINDO
  Company Number: EU-AFSSAPS-DJ2025001788

PATIENT
  Age: 89 Year
  Sex: Female
  Weight: 51 kg

DRUGS (5)
  1. HYDROCHLOROTHIAZIDE [Suspect]
     Active Substance: HYDROCHLOROTHIAZIDE
     Indication: Cardiac failure
     Dosage: 12.5 MILLIGRAM, ONCE A DAY
     Dates: start: 20251022, end: 20251029
  2. NEO-MERCAZOLE [Suspect]
     Active Substance: CARBIMAZOLE
     Indication: Hyperthyroidism
     Dosage: 10 MILLIGRAM, ONCE A DAY
     Dates: start: 20251021, end: 20251031
  3. INNOHEP 10 000 U.I. anti-Xa/0,5 ml, solution injectable (S.C.) en seri [Concomitant]
     Indication: Thrombosis prophylaxis
     Dosage: 9500 INTERNATIONAL UNIT, ONCE A DAY
     Dates: start: 20251020
  4. FUROSEMIDE KALCEKS [Concomitant]
     Indication: Product used for unknown indication
     Dosage: UNK
     Route: 065
  5. BISOPROLOL VIATRIS 2,5 mg, comprim? pellicul? s?cable [Concomitant]
     Indication: Product used for unknown indication
     Dosage: UNK
     Route: 065

REACTIONS (1)
  - Cholestasis [Recovering/Resolving]

NARRATIVE: CASE EVENT DATE: 20251027
